FAERS Safety Report 7810155-4 (Version None)
Quarter: 2011Q4

REPORT INFORMATION
  Report Type: 
  Country: None (occurrence: None)
  Receive Date: 20111012
  Receipt Date: 20111006
  Transmission Date: 20120403
  Serious: Yes (Hospitalization)
  Sender: FDA-Public Use
  Company Number: DE-CEPHALON-2011003985

PATIENT
  Age: 74 Year
  Sex: Male
  Weight: 82 kg

DRUGS (4)
  1. ATROVENT [Concomitant]
     Dates: start: 20110725
  2. RITUXIMAB [Suspect]
     Route: 042
     Dates: start: 20110714
  3. BENDAMUSTINE HCL [Suspect]
     Route: 042
     Dates: start: 20110715
  4. LENALIDOMIDE [Suspect]
     Route: 048
     Dates: start: 20110715, end: 20110726

REACTIONS (1)
  - PNEUMONIA [None]
